FAERS Safety Report 7196897-5 (Version None)
Quarter: 2010Q4

REPORT INFORMATION
  Report Type: 
  Country: None (occurrence: None)
  Receive Date: 20101223
  Receipt Date: 20101213
  Transmission Date: 20110411
  Serious: Yes (Hospitalization, Other)
  Sender: FDA-Public Use
  Company Number: PHHY2010JP76733

PATIENT
  Age: 74 Year
  Sex: Male

DRUGS (1)
  1. NEORAL [Suspect]
     Dosage: UNK
     Route: 048

REACTIONS (11)
  - ABDOMINAL PAIN [None]
  - ADRENAL INSUFFICIENCY [None]
  - CHILLS [None]
  - CHOLECYSTITIS ACUTE [None]
  - DECREASED APPETITE [None]
  - DIABETES MELLITUS [None]
  - LIVER FUNCTION TEST ABNORMAL [None]
  - MALAISE [None]
  - PYREXIA [None]
  - RENAL IMPAIRMENT [None]
  - WEIGHT DECREASED [None]
